FAERS Safety Report 17560333 (Version 1)
Quarter: 2020Q1

REPORT INFORMATION
  Report Type: Spontaneous
  Country: US (occurrence: US)
  Receive Date: 20200319
  Receipt Date: 20200319
  Transmission Date: 20200409
  Serious: Yes (Other)
  Sender: FDA-Public Use
  Company Number: NVSC2020US071349

PATIENT
  Sex: Female

DRUGS (1)
  1. PIQRAY [Suspect]
     Active Substance: ALPELISIB
     Indication: BREAST CANCER METASTATIC
     Dosage: UNK
     Route: 065
     Dates: start: 20200204, end: 20200218

REACTIONS (8)
  - Vomiting [Unknown]
  - Rash [Recovered/Resolved]
  - Oral pain [Unknown]
  - Nausea [Unknown]
  - Hypersensitivity [Recovered/Resolved]
  - Mucosal inflammation [Unknown]
  - Pruritus [Recovered/Resolved]
  - Feeding disorder [Unknown]
